FAERS Safety Report 6987182-2 (Version None)
Quarter: 2010Q3

REPORT INFORMATION
  Report Type: 
  Country: None (occurrence: None)
  Receive Date: 20100916
  Receipt Date: 20100907
  Transmission Date: 20110219
  Serious: Yes (Disabling)
  Sender: FDA-Public Use
  Company Number: FR-PFIZER INC-2010106870

PATIENT
  Age: 52 Year
  Sex: Male
  Weight: 70 kg

DRUGS (2)
  1. SUTENT [Suspect]
     Indication: THYMOMA
     Dosage: 50 MG, 1X/DAY
     Route: 048
     Dates: start: 20090915
  2. MEDROL [Concomitant]
     Indication: SPINAL DISORDER
     Dosage: 32 NO UNIT PROVIDED, 1X/DAY
     Route: 048
     Dates: start: 20100705

REACTIONS (3)
  - CONJUNCTIVITIS [None]
  - GLOSSITIS [None]
  - LIP ULCERATION [None]
